FAERS Safety Report 6487393-9 (Version None)
Quarter: 2009Q4

REPORT INFORMATION
  Report Type: 
  Country: None (occurrence: None)
  Receive Date: 20091210
  Receipt Date: 20091201
  Transmission Date: 20100525
  Serious: Yes (Other)
  Sender: FDA-Public Use
  Company Number: US-AMGEN-QUU377686

PATIENT
  Sex: Male

DRUGS (1)
  1. ENBREL [Suspect]
     Indication: PSORIASIS

REACTIONS (5)
  - CONTUSION [None]
  - DIZZINESS [None]
  - MALAISE [None]
  - NAUSEA [None]
  - RASH ERYTHEMATOUS [None]
